FAERS Safety Report 9472163 (Version 1)
Quarter: 2013Q3

REPORT INFORMATION
  Report Type: Spontaneous
  Country: US (occurrence: None)
  Receive Date: 20130821
  Receipt Date: 20130821
  Transmission Date: 20140515
  Serious: Yes (Death)
  Sender: FDA-Public Use
  Company Number: None

PATIENT
  Age: 29 Year
  Sex: Male
  Weight: 83.92 kg

DRUGS (1)
  1. PARADIGM INSULIN PUMP [Suspect]

REACTIONS (2)
  - Blood glucose decreased [None]
  - Device issue [None]
